FAERS Safety Report 9703866 (Version 3)
Quarter: 2014Q1

REPORT INFORMATION
  Report Type: Spontaneous
  Country: IT (occurrence: IT)
  Receive Date: 20131122
  Receipt Date: 20140221
  Transmission Date: 20141002
  Serious: Yes (Hospitalization)
  Sender: FDA-Public Use
  Company Number: IT-US-EMD SERONO, INC.-7250695

PATIENT
  Age: 36 Year
  Sex: Female

DRUGS (1)
  1. CETROTIDE (CETRORELIX ACETATE FOR INJECTION) [Suspect]
     Indication: ASSISTED FERTILISATION
     Route: 048
     Dates: start: 20131007, end: 20131012

REACTIONS (4)
  - Hyperhidrosis [Recovered/Resolved]
  - Skin reaction [Recovered/Resolved]
  - Vertigo [Recovered/Resolved]
  - Tachycardia [Recovered/Resolved]
